FAERS Safety Report 7588702-X (Version None)
Quarter: 2011Q3

REPORT INFORMATION
  Report Type: 
  Country: None (occurrence: None)
  Receive Date: 20110705
  Receipt Date: 20110623
  Transmission Date: 20111222
  Serious: Yes (Other)
  Sender: FDA-Public Use
  Company Number: US-BAYER-2011-016144

PATIENT
  Age: 18 Year
  Sex: Female
  Weight: 68.027 kg

DRUGS (3)
  1. YAZ [Suspect]
     Indication: ACNE
     Dosage: UNK UNK, QD
     Route: 048
     Dates: start: 20080101, end: 20090101
  2. LIALDA [Concomitant]
     Dosage: 1.2 G, UNK
     Route: 048
  3. PRILOSEC [Concomitant]
     Dosage: UNK UNK, QD

REACTIONS (6)
  - PANCREATITIS [None]
  - GALLBLADDER INJURY [None]
  - FATIGUE [None]
  - CHOLECYSTITIS CHRONIC [None]
  - PAIN [None]
  - INJURY [None]
